FAERS Safety Report 4355708-3 (Version None)
Quarter: 2004Q2

REPORT INFORMATION
  Report Type: 
  Country: None (occurrence: None)
  Receive Date: 20040510
  Receipt Date: 20040510
  Transmission Date: 20050107
  Serious: Yes (Death)
  Sender: FDA-Public Use
  Company Number: None

PATIENT
  Age: 15 Year
  Sex: Female
  Weight: 47.6277 kg

DRUGS (1)
  1. LEXAPRO [Suspect]
     Indication: DEPRESSION
     Dosage: ONE DAILY ORALLY
     Route: 048
     Dates: start: 20040406, end: 20040423

REACTIONS (13)
  - ACIDOSIS [None]
  - CARDIO-RESPIRATORY ARREST [None]
  - CHEST INJURY [None]
  - COMPLETED SUICIDE [None]
  - DISORDER OF ORBIT [None]
  - HAEMOTHORAX [None]
  - HYPOXIA [None]
  - INTENTIONAL OVERDOSE [None]
  - JAW FRACTURE [None]
  - OXYGEN SATURATION DECREASED [None]
  - PNEUMOTHORAX [None]
  - ROAD TRAFFIC ACCIDENT [None]
  - TRAUMATIC BRAIN INJURY [None]
